FAERS Safety Report 5887573-7 (Version None)
Quarter: 2008Q3

REPORT INFORMATION
  Report Type: 
  Country: None (occurrence: None)
  Receive Date: 20080918
  Receipt Date: 20080912
  Transmission Date: 20090109
  Serious: Yes (Other)
  Sender: FDA-Public Use
  Company Number: PHHY2008BR21335

PATIENT
  Sex: Male

DRUGS (2)
  1. DIOVAN [Suspect]
     Indication: BLOOD PRESSURE
     Dosage: 1 DF, QD
  2. AMIODARONE HCL [Concomitant]
     Indication: ARRHYTHMIA
     Dosage: 1 DF, QD

REACTIONS (3)
  - ARRHYTHMIA [None]
  - HYPOTENSION [None]
  - MALAISE [None]
